FAERS Safety Report 8956210 (Version 1)
Quarter: 2012Q4

REPORT INFORMATION
  Report Type: 
  Country: US (occurrence: US)
  Receive Date: 20121210
  Receipt Date: 20121210
  Transmission Date: 20130627
  Serious: Yes (Hospitalization)
  Sender: FDA-Public Use
  Company Number: PHHY2012US112189

PATIENT
  Age: 78 Year
  Sex: Female

DRUGS (1)
  1. METOCLOPRAMIDE [Suspect]
     Indication: DIABETIC GASTROPARESIS
     Dosage: 5 mg, TID

REACTIONS (17)
  - Tardive dyskinesia [Recovering/Resolving]
  - Respiratory dyskinesia [Recovering/Resolving]
  - Dyspnoea [Recovering/Resolving]
  - Chest pain [Recovering/Resolving]
  - Headache [Recovering/Resolving]
  - Respiratory alkalosis [Recovering/Resolving]
  - Tachypnoea [Recovering/Resolving]
  - Anxiety [Recovering/Resolving]
  - Choking sensation [Recovering/Resolving]
  - Dry mouth [Recovering/Resolving]
  - Excessive eye blinking [Recovering/Resolving]
  - Chorea [Recovering/Resolving]
  - Dyskinesia [Recovering/Resolving]
  - Respiratory rate increased [Recovering/Resolving]
  - Hyperventilation [Recovering/Resolving]
  - Withdrawal syndrome [Unknown]
  - Left ventricular hypertrophy [Recovering/Resolving]
